FAERS Safety Report 6738515-3 (Version None)
Quarter: 2010Q2

REPORT INFORMATION
  Report Type: 
  Country: None (occurrence: None)
  Receive Date: 20100524
  Receipt Date: 20100517
  Transmission Date: 20101027
  Serious: Yes (Hospitalization)
  Sender: FDA-Public Use
  Company Number: PHHO2010DE07361

PATIENT
  Sex: Female
  Weight: 55 kg

DRUGS (12)
  1. STI571/CGP57148B T35717+TAB [Suspect]
     Indication: GASTRIC CANCER
     Dosage: 200 MG
     Route: 048
     Dates: start: 20100506, end: 20100514
  2. CISPLATIN [Suspect]
  3. CAPECITABINE [Suspect]
  4. PASPERTIN [Concomitant]
  5. HALDOL [Concomitant]
  6. NEUROCIL DROPS [Concomitant]
  7. VOMEX A [Concomitant]
  8. KEVATRIL [Concomitant]
  9. FORTECORTIN [Concomitant]
  10. EMEND [Concomitant]
  11. LEVOTHYROXINE SODIUM [Concomitant]
  12. PANTOPRAZOLE SODIUM [Concomitant]

REACTIONS (3)
  - GENERAL PHYSICAL HEALTH DETERIORATION [None]
  - NAUSEA [None]
  - VOMITING [None]
